FAERS Safety Report 8206453-5 (Version None)
Quarter: 2012Q1

REPORT INFORMATION
  Report Type: 
  Country: None (occurrence: None)
  Receive Date: 20120313
  Receipt Date: 20120305
  Transmission Date: 20120608
  Serious: Yes (Other)
  Sender: FDA-Public Use
  Company Number: US-ROCHE-798361

PATIENT
  Sex: Male
  Weight: 81.72 kg

DRUGS (1)
  1. ACCUTANE [Suspect]
     Indication: ACNE
     Route: 065
     Dates: start: 19970120, end: 19970829

REACTIONS (4)
  - COLITIS [None]
  - EMOTIONAL DISORDER [None]
  - BLOOD CHOLESTEROL INCREASED [None]
  - CROHN'S DISEASE [None]
